FAERS Safety Report 17805730 (Version 7)
Quarter: 2022Q1

REPORT INFORMATION
  Report Type: Spontaneous
  Country: US (occurrence: US)
  Receive Date: 20200519
  Receipt Date: 20220203
  Transmission Date: 20220423
  Serious: No
  Sender: FDA-Public Use
  Company Number: US-INCYTE CORPORATION-2020IN004221

PATIENT

DRUGS (24)
  1. JAKAFI [Suspect]
     Active Substance: RUXOLITINIB
     Indication: Malignant melanoma
     Dosage: 10 MILLIGRAM
     Route: 065
     Dates: start: 2019
  2. JAKAFI [Suspect]
     Active Substance: RUXOLITINIB
     Dosage: 5 MILLIGRAM, QD
     Route: 048
  3. JAKAFI [Suspect]
     Active Substance: RUXOLITINIB
     Dosage: 5 MILLIGRAM, QOD
     Route: 048
  4. JAKAFI [Suspect]
     Active Substance: RUXOLITINIB
     Dosage: UNK
     Route: 065
  5. JAKAFI [Suspect]
     Active Substance: RUXOLITINIB
     Dosage: 10 MILLIGRAM, QD
     Route: 048
  6. JAKAFI [Suspect]
     Active Substance: RUXOLITINIB
     Dosage: 10 MILLIGRAM, QD, EVERY OTHER DAY
     Route: 048
     Dates: start: 20200211
  7. JAKAFI [Suspect]
     Active Substance: RUXOLITINIB
     Dosage: 10 MILLIGRAM, QD, EVERY OTHER DAY
     Route: 048
     Dates: start: 20200211
  8. JAKAFI [Suspect]
     Active Substance: RUXOLITINIB
     Dosage: 10 MILLIGRAM, QOD
     Route: 048
     Dates: start: 20200211
  9. JAKAFI [Suspect]
     Active Substance: RUXOLITINIB
     Dosage: 10 MILLIGRAM, QOD
     Route: 048
  10. IRON [Suspect]
     Active Substance: IRON
     Indication: Haemoglobin decreased
     Route: 065
  11. IRON [Suspect]
     Active Substance: IRON
     Indication: Platelet count decreased
  12. ALEVE [Concomitant]
     Active Substance: NAPROXEN SODIUM
     Indication: Product used for unknown indication
     Route: 065
  13. ASPIRIN [Concomitant]
     Active Substance: ASPIRIN
     Indication: Product used for unknown indication
     Route: 065
  14. BRIMONIDINE TARTRATE [Concomitant]
     Active Substance: BRIMONIDINE TARTRATE
     Indication: Product used for unknown indication
     Route: 065
  15. MINERALS\VITAMINS [Concomitant]
     Active Substance: MINERALS\VITAMINS
     Indication: Product used for unknown indication
     Route: 065
  16. CRANBERRY CONCENTRATE [VACCINIUM MACROCARPON] [Concomitant]
     Indication: Product used for unknown indication
     Route: 065
  17. LEVETIRACETAM [Concomitant]
     Active Substance: LEVETIRACETAM
     Indication: Product used for unknown indication
     Route: 065
  18. LEVOTHYROXINE SODIUM [Concomitant]
     Active Substance: LEVOTHYROXINE SODIUM
     Indication: Product used for unknown indication
     Route: 065
  19. MYRBETRIQ [Concomitant]
     Active Substance: MIRABEGRON
     Indication: Product used for unknown indication
     Route: 065
  20. NITROFURANTOIN MONOHYDRATE MACROCRYSTALS [Concomitant]
     Active Substance: NITROFURANTOIN\NITROFURANTOIN MONOHYDRATE
     Indication: Product used for unknown indication
     Route: 065
  21. OMEPRAZOLE [Concomitant]
     Active Substance: OMEPRAZOLE
     Indication: Product used for unknown indication
     Route: 065
  22. PRIMIDONE [Concomitant]
     Active Substance: PRIMIDONE
     Indication: Product used for unknown indication
     Route: 065
  23. TOLTERODINE TARTRATE [Concomitant]
     Active Substance: TOLTERODINE TARTRATE
     Indication: Product used for unknown indication
     Route: 065
  24. TYLENOL EXTRA STRENGTH [Concomitant]
     Active Substance: ACETAMINOPHEN
     Indication: Product used for unknown indication
     Route: 065

REACTIONS (16)
  - Splenomegaly [Unknown]
  - Early satiety [Unknown]
  - Abdominal pain [Unknown]
  - Back pain [Unknown]
  - Initial insomnia [Unknown]
  - Asthenia [Unknown]
  - Vomiting [Unknown]
  - Product availability issue [Unknown]
  - Product dose omission issue [Unknown]
  - Off label use [Unknown]
  - Fatigue [Unknown]
  - Platelet count decreased [Unknown]
  - Nausea [Recovering/Resolving]
  - Diarrhoea [Recovering/Resolving]
  - Haemoglobin decreased [Unknown]
  - Constipation [Unknown]
